FAERS Safety Report 11422113 (Version 4)
Quarter: 2015Q4

REPORT INFORMATION
  Report Type: Report from Study
  Country: US (occurrence: US)
  Receive Date: 20150827
  Receipt Date: 20151014
  Transmission Date: 20160304
  Serious: Yes (Hospitalization, Other)
  Sender: FDA-Public Use
  Company Number: US-GILEAD-2015-0155946

PATIENT
  Age: 69 Year
  Sex: Female

DRUGS (4)
  1. SILDENAFIL. [Concomitant]
     Active Substance: SILDENAFIL
  2. AMBRISENTAN [Suspect]
     Active Substance: AMBRISENTAN
     Indication: PULMONARY HYPERTENSION
     Dosage: 5 MG, UNK
     Route: 065
     Dates: start: 20150509
  3. AMBRISENTAN [Suspect]
     Active Substance: AMBRISENTAN
     Indication: COLLAGEN-VASCULAR DISEASE
     Dosage: 10 MG, QD
     Route: 065
  4. LASIX [Concomitant]
     Active Substance: FUROSEMIDE

REACTIONS (10)
  - Dizziness [Unknown]
  - Hypokalaemia [Unknown]
  - Oedema [Unknown]
  - Hypoxia [Unknown]
  - Dyspnoea [Unknown]
  - Oedema peripheral [Unknown]
  - Pleural effusion [Unknown]
  - Cardiac failure [Unknown]
  - Nausea [Unknown]
  - Fluid overload [Recovered/Resolved]
